FAERS Safety Report 8268350-9 (Version None)
Quarter: 2012Q1

REPORT INFORMATION
  Report Type: 
  Country: None (occurrence: None)
  Receive Date: 20120327
  Receipt Date: 20090916
  Transmission Date: 20120608
  Serious: Yes (Hospitalization)
  Sender: FDA-Public Use
  Company Number: PHEH2009US11022

PATIENT
  Age: 54 Year
  Sex: Female

DRUGS (4)
  1. ASPIRIN [Concomitant]
  2. ANAGRELIDE HCL [Concomitant]
  3. GLEEVEC [Suspect]
     Indication: CHRONIC MYELOID LEUKAEMIA
     Dosage: 400 MG, QD, ORAL   300 MG, QD, ORAL
     Route: 048
     Dates: start: 20090727, end: 20090811
  4. LEXAPRO [Concomitant]

REACTIONS (8)
  - CHILLS [None]
  - RED BLOOD CELL COUNT DECREASED [None]
  - NAUSEA [None]
  - VOMITING [None]
  - HAEMOGLOBIN DECREASED [None]
  - NEUTROPENIA [None]
  - DIARRHOEA [None]
  - WHITE BLOOD CELL COUNT DECREASED [None]
